FAERS Safety Report 25926433 (Version 1)
Quarter: 2025Q4

REPORT INFORMATION
  Report Type: Spontaneous
  Country: KR (occurrence: KR)
  Receive Date: 20251015
  Receipt Date: 20251015
  Transmission Date: 20260119
  Serious: Yes (Other)
  Sender: PFIZER
  Company Number: KR-PFIZER INC-PV202500121685

PATIENT
  Age: 55 Year
  Sex: Male

DRUGS (1)
  1. XYNTHA [Suspect]
     Active Substance: MOROCTOCOG ALFA
     Dosage: 2000 IU, THREE TIMES A WEEK
     Route: 042
     Dates: start: 2015

REACTIONS (2)
  - Fall [Unknown]
  - Haemarthrosis [Recovering/Resolving]

NARRATIVE: CASE EVENT DATE: 20251001
